FAERS Safety Report 7264097-6 (Version None)
Quarter: 2011Q1

REPORT INFORMATION
  Report Type: 
  Country: None (occurrence: None)
  Receive Date: 20110130
  Receipt Date: 20101229
  Transmission Date: 20110831
  Serious: No
  Sender: FDA-Public Use
  Company Number: US-ABBOTT-11P-163-0694701-00

PATIENT
  Sex: Male
  Weight: 86.26 kg

DRUGS (5)
  1. METOPROLOL [Concomitant]
     Indication: HYPERTENSION
  2. ZOCOR [Concomitant]
     Indication: BLOOD CHOLESTEROL INCREASED
  3. ANDRODERM [Concomitant]
     Indication: BLOOD TESTOSTERONE
     Dosage: PATCH
  4. HUMIRA [Suspect]
     Indication: RHEUMATOID ARTHRITIS
     Dates: start: 20031201, end: 20101205
  5. ASPIRIN [Concomitant]
     Indication: PROPHYLAXIS

REACTIONS (4)
  - ROAD TRAFFIC ACCIDENT [None]
  - TOOTH FRACTURE [None]
  - FATIGUE [None]
  - TOOTH ABSCESS [None]
